FAERS Safety Report 21331953 (Version 1)
Quarter: 2022Q3

REPORT INFORMATION
  Report Type: Spontaneous
  Country: DE (occurrence: DE)
  Receive Date: 20220914
  Receipt Date: 20220914
  Transmission Date: 20221026
  Serious: Yes (Death, Other)
  Sender: FDA-Public Use
  Company Number: DE-AMGEN-DEUSP2022155859

PATIENT

DRUGS (1)
  1. NEUPOGEN [Suspect]
     Active Substance: FILGRASTIM
     Indication: Haematopoietic stem cell mobilisation
     Dosage: 10 MICROGRAM/KILOGRAM, QD
     Route: 058

REACTIONS (11)
  - Ventricular fibrillation [Fatal]
  - C-reactive protein increased [Recovered/Resolved]
  - Muscle discomfort [Unknown]
  - Blood alkaline phosphatase [Recovered/Resolved]
  - Bone pain [Unknown]
  - Fatigue [Unknown]
  - Pyrexia [Unknown]
  - Rash [Unknown]
  - Nausea [Unknown]
  - Platelet count decreased [Unknown]
  - Blood lactate dehydrogenase increased [Recovered/Resolved]
